FAERS Safety Report 5928438-1 (Version None)
Quarter: 2008Q4

REPORT INFORMATION
  Report Type: 
  Country: None (occurrence: None)
  Receive Date: 20081020
  Receipt Date: 20081007
  Transmission Date: 20090506
  Serious: Yes (Other)
  Sender: FDA-Public Use
  Company Number: FRP08001086

PATIENT
  Age: 63 Year
  Sex: Female

DRUGS (5)
  1. ACTONEL [Suspect]
     Indication: OSTEOPOROSIS
     Dosage: 35 MG, 1 /WEEK, ORAL
     Route: 048
     Dates: start: 20030101, end: 20080201
  2. ACTONEL [Suspect]
     Indication: OSTEOPOROSIS
     Dosage: 5 MG, DAILY, ORAL
     Route: 048
     Dates: start: 20020101, end: 20030101
  3. ESTRADIOL [Concomitant]
  4. DUPHASTON [Concomitant]
  5. EVISTA ELI LILLY (RALOXIFENE HYDROCHLORIDE) [Concomitant]

REACTIONS (1)
  - OSTEITIS [None]
